FAERS Safety Report 8104669-X (Version None)
Quarter: 2012Q1

REPORT INFORMATION
  Report Type: 
  Country: None (occurrence: None)
  Receive Date: 20120201
  Receipt Date: 20120123
  Transmission Date: 20120608
  Serious: Yes (Life-Threatening, Hospitalization)
  Sender: FDA-Public Use
  Company Number: AT-JNJFOC-20120107351

PATIENT
  Sex: Male

DRUGS (2)
  1. XARELTO [Suspect]
     Indication: PROPHYLAXIS
     Route: 048
     Dates: start: 20111210, end: 20120105
  2. XARELTO [Suspect]
     Indication: JOINT ARTHROPLASTY
     Route: 048
     Dates: start: 20111210, end: 20120105

REACTIONS (5)
  - RENAL IMPAIRMENT [None]
  - GASTROINTESTINAL HAEMORRHAGE [None]
  - ANAEMIA [None]
  - CIRCULATORY COLLAPSE [None]
  - MELAENA [None]
